APPROVED DRUG PRODUCT: CHOLEDYL
Active Ingredient: OXTRIPHYLLINE
Strength: 50MG/5ML
Dosage Form/Route: SYRUP;ORAL
Application: N009268 | Product #011
Applicant: PARKE DAVIS DIV WARNER LAMBERT CO
Approved: Approved Prior to Jan 1, 1982 | RLD: No | RS: No | Type: DISCN